FAERS Safety Report 18109176 (Version 1)
Quarter: 2020Q3

REPORT INFORMATION
  Report Type: Spontaneous
  Country: US (occurrence: US)
  Receive Date: 20200804
  Receipt Date: 20200804
  Transmission Date: 20201103
  Serious: No
  Sender: FDA-Public Use
  Company Number: None

PATIENT
  Age: 93 Year
  Sex: Female
  Weight: 66.15 kg

DRUGS (4)
  1. CEPHALEXIN. [Concomitant]
     Active Substance: CEPHALEXIN
  2. ANASTROZOLE. [Concomitant]
     Active Substance: ANASTROZOLE
  3. COREG [Concomitant]
     Active Substance: CARVEDILOL
  4. IBRANCE [Suspect]
     Active Substance: PALBOCICLIB
     Indication: MALIGNANT NIPPLE NEOPLASM FEMALE
     Route: 048
     Dates: start: 20170526

REACTIONS (1)
  - Rash [None]

NARRATIVE: CASE EVENT DATE: 20200804
